FAERS Safety Report 4861161-3 (Version None)
Quarter: 2005Q4

REPORT INFORMATION
  Report Type: 
  Country: None (occurrence: None)
  Receive Date: 20051220
  Receipt Date: 20051117
  Transmission Date: 20060501
  Serious: Yes (Other)
  Sender: FDA-Public Use
  Company Number: 2005AP05976

PATIENT
  Age: 30183 Day
  Sex: Male

DRUGS (8)
  1. SEROQUEL [Suspect]
     Indication: RESTLESSNESS
     Route: 048
     Dates: start: 20050920, end: 20051021
  2. SEROQUEL [Suspect]
     Route: 048
     Dates: start: 20051101
  3. GRAMALIL [Suspect]
     Indication: RESTLESSNESS
     Route: 048
     Dates: start: 20050831, end: 20051021
  4. GRAMALIL [Suspect]
     Route: 048
     Dates: start: 20051101
  5. RISPERDAL [Suspect]
     Indication: RESTLESSNESS
     Route: 048
     Dates: start: 20050831, end: 20051021
  6. RISPERDAL [Suspect]
     Route: 048
     Dates: start: 20051101
  7. MYSLEE [Concomitant]
     Indication: INSOMNIA
     Route: 048
     Dates: start: 20050831, end: 20051022
  8. MYSLEE [Concomitant]
     Route: 048
     Dates: start: 20051101

REACTIONS (2)
  - DEHYDRATION [None]
  - PNEUMONIA ASPIRATION [None]
